FAERS Safety Report 20624810 (Version 1)
Quarter: 2022Q1

REPORT INFORMATION
  Report Type: Spontaneous
  Country: GB (occurrence: GB)
  Receive Date: 20220323
  Receipt Date: 20220323
  Transmission Date: 20220423
  Serious: Yes (Other)
  Sender: FDA-Public Use
  Company Number: GB-MHRA-INP832208B4-97A9-4048-B697-E13E007A9AF8

PATIENT
  Age: 67 Year
  Sex: Female
  Weight: 93 kg

DRUGS (4)
  1. SERTRALINE [Suspect]
     Active Substance: SERTRALINE HYDROCHLORIDE
     Indication: Product used for unknown indication
     Dosage: 25 MILLIGRAM, ONCE A DAY (FOR 4 DAYS INCREASING TO 50MG OD)
     Route: 065
     Dates: start: 20220121, end: 20220304
  2. BETTAMOUSSE [Concomitant]
     Indication: Product used for unknown indication
     Dosage: 1 DOSAGE FORM, ONCE A DAY (FOR 4 WEEKS)
     Route: 065
     Dates: start: 20220225
  3. FLUOXETINE [Concomitant]
     Active Substance: FLUOXETINE HYDROCHLORIDE
     Indication: Product used for unknown indication
     Dosage: 20 MILLIGRAM, ONCE A DAY (WEANING OFF FOR CHANGE OF MEDS)
     Route: 065
     Dates: start: 20220110
  4. SUMATRIPTAN [Concomitant]
     Active Substance: SUMATRIPTAN
     Indication: Migraine
     Dosage: 100 MILLIGRAM (1 AT THE ONSET OF MIGRAINE ATTACK. CAN REPEAT DOSE AFTER 2 HOURS IF MIGRAINE RECURS.)
     Route: 065
     Dates: start: 20211206

REACTIONS (2)
  - Arthralgia [Unknown]
  - Psoriasis [Unknown]

NARRATIVE: CASE EVENT DATE: 20220204
